FAERS Safety Report 15492869 (Version 5)
Quarter: 2019Q1

REPORT INFORMATION
  Report Type: Spontaneous
  Country: CA (occurrence: CA)
  Receive Date: 20181012
  Receipt Date: 20190329
  Transmission Date: 20190417
  Serious: Yes (Other)
  Sender: FDA-Public Use
  Company Number: CA-CELLTRION INC.-2017CA016004

PATIENT

DRUGS (26)
  1. INFLECTRA [Suspect]
     Active Substance: INFLIXIMAB-DYYB
     Indication: BEHCET^S SYNDROME
     Dosage: 400 MG, 0,2,6 WEEKS, THE EVERY 8 WEEKS
     Route: 042
     Dates: start: 20180227
  2. INFLECTRA [Suspect]
     Active Substance: INFLIXIMAB-DYYB
     Dosage: 400 MG, 0,2,6 WEEKS, THE EVERY 8 WEEKS
     Route: 042
     Dates: start: 20180803
  3. JANUMET [Concomitant]
     Active Substance: METFORMIN HYDROCHLORIDE\SITAGLIPTIN PHOSPHATE
     Dosage: UNK
  4. DIPHENHYDRAMINE. [Concomitant]
     Active Substance: DIPHENHYDRAMINE
     Indication: PREMEDICATION
     Dosage: 50 MG
     Route: 048
  5. INFLECTRA [Suspect]
     Active Substance: INFLIXIMAB-DYYB
     Dosage: 400 MG, 0,2,6 WEEKS, THE EVERY 8 WEEKS
     Route: 042
     Dates: start: 20181121
  6. LEVEMIR [Concomitant]
     Active Substance: INSULIN DETEMIR
     Dosage: UNK
  7. PREDNISONE. [Concomitant]
     Active Substance: PREDNISONE
     Dosage: DECREASING DOSES FOR 2 WEEKS
     Dates: start: 20171101
  8. INFLECTRA [Suspect]
     Active Substance: INFLIXIMAB-DYYB
     Dosage: 400 MG, 0,2,6 WEEKS, THE EVERY 8 WEEKS
     Route: 042
     Dates: start: 20180928
  9. NAPROXEN. [Concomitant]
     Active Substance: NAPROXEN
     Indication: PAIN IN EXTREMITY
     Dosage: 500 MG BID(2X/DAY) FOR 7 TO 10 DAYS
  10. TYLENOL EXTRA STRENGTH [Concomitant]
     Active Substance: ACETAMINOPHEN
     Indication: PAIN IN EXTREMITY
     Dosage: 500 MG
  11. OMEPRAZOLE. [Concomitant]
     Active Substance: OMEPRAZOLE
     Dosage: UNK, BID
  12. INFLECTRA [Suspect]
     Active Substance: INFLIXIMAB-DYYB
     Dosage: 400 MG, 0,2,6 WEEKS, THE EVERY 8 WEEKS
     Route: 042
     Dates: start: 20180928
  13. INFLECTRA [Suspect]
     Active Substance: INFLIXIMAB-DYYB
     Dosage: 400 MG, 0,2,6 WEEKS, THE EVERY 8 WEEKS
     Route: 042
     Dates: start: 20180928
  14. INFLECTRA [Suspect]
     Active Substance: INFLIXIMAB-DYYB
     Indication: ULCER
     Dosage: 400 MG, 0,2,6 WEEKS, THE EVERY 8 WEEKS
     Route: 042
     Dates: start: 20180312
  15. INFLECTRA [Suspect]
     Active Substance: INFLIXIMAB-DYYB
     Indication: ARTHRITIS
     Dosage: 400 MG, 0,2,6 WEEKS, THE EVERY 8 WEEKS
     Route: 042
     Dates: start: 20180412
  16. INFLECTRA [Suspect]
     Active Substance: INFLIXIMAB-DYYB
     Dosage: 400 MG, 0,2,6 WEEKS THEN EBERY 8 WEEKS
     Route: 042
     Dates: start: 20190117
  17. PREGABALIN. [Concomitant]
     Active Substance: PREGABALIN
     Dosage: UNK
  18. ROSUVASTATIN. [Concomitant]
     Active Substance: ROSUVASTATIN
     Dosage: UNK
  19. ACETAMINOPHEN. [Concomitant]
     Active Substance: ACETAMINOPHEN
     Indication: PREMEDICATION
     Dosage: 1000 MG
     Route: 048
  20. INFLECTRA [Suspect]
     Active Substance: INFLIXIMAB-DYYB
     Dosage: 400 MG, 0,2,6 WEEKS, THE EVERY 8 WEEKS
     Route: 042
     Dates: start: 20180608
  21. LEUCOVORIN CALCIUM FARMOS [Concomitant]
     Active Substance: LEUCOVORIN CALCIUM
     Dosage: UNK, 1/WEEK
     Route: 048
  22. CAL-D [Concomitant]
     Dosage: UNK
  23. NOVORAPID [Concomitant]
     Active Substance: INSULIN ASPART
     Dosage: UNK
  24. HYDROCORTISONE. [Concomitant]
     Active Substance: HYDROCORTISONE
     Indication: PREMEDICATION
     Dosage: 100 MG
     Route: 042
  25. DULOXETINE. [Concomitant]
     Active Substance: DULOXETINE
     Dosage: UNK
  26. SYNTHROID [Concomitant]
     Active Substance: LEVOTHYROXINE SODIUM
     Dosage: UNK

REACTIONS (25)
  - Erythema [Unknown]
  - Mouth ulceration [Recovered/Resolved]
  - Pain in extremity [Not Recovered/Not Resolved]
  - Movement disorder [Unknown]
  - Peripheral nerve lesion [Unknown]
  - Visual acuity reduced [Not Recovered/Not Resolved]
  - Drug effect incomplete [Unknown]
  - Joint swelling [Unknown]
  - Emotional disorder [Unknown]
  - Blood pressure fluctuation [Unknown]
  - Somnolence [Not Recovered/Not Resolved]
  - Fatigue [Not Recovered/Not Resolved]
  - Eye pain [Not Recovered/Not Resolved]
  - Sjogren^s syndrome [Unknown]
  - Dry eye [Not Recovered/Not Resolved]
  - Muscle spasms [Unknown]
  - Product use in unapproved indication [Unknown]
  - Decreased appetite [Not Recovered/Not Resolved]
  - Pruritus [Not Recovered/Not Resolved]
  - Musculoskeletal stiffness [Unknown]
  - Hypersomnia [Unknown]
  - C-reactive protein decreased [Unknown]
  - Headache [Unknown]
  - Nausea [Recovered/Resolved]
  - Dry skin [Not Recovered/Not Resolved]

NARRATIVE: CASE EVENT DATE: 20180227
